FAERS Safety Report 9986461 (Version 1)
Quarter: 2014Q1

REPORT INFORMATION
  Report Type: Report from Study
  Country: US (occurrence: US)
  Receive Date: 20140307
  Receipt Date: 20140307
  Transmission Date: 20141002
  Serious: No
  Sender: FDA-Public Use
  Company Number: US-ABBVIE-13P-163-1082091-00

PATIENT
  Age: 51 Year
  Sex: Female
  Weight: 68.1 kg

DRUGS (7)
  1. HUMIRA [Suspect]
     Indication: RHEUMATOID ARTHRITIS
     Route: 058
     Dates: start: 20130404
  2. PREDNISONE [Concomitant]
     Indication: RHEUMATOID ARTHRITIS
  3. VITAMIN B12 [Concomitant]
     Indication: ASTHENIA
  4. VITAMIN D [Concomitant]
     Indication: RHEUMATOID ARTHRITIS
  5. BABY ASA [Concomitant]
     Indication: PROPHYLAXIS
     Route: 048
  6. GABAPENTIN [Concomitant]
     Indication: NEURALGIA
  7. OMEPRAZOLE [Concomitant]
     Indication: GASTROOESOPHAGEAL REFLUX DISEASE

REACTIONS (3)
  - Sensation of heaviness [Recovered/Resolved]
  - Fatigue [Recovered/Resolved]
  - Influenza like illness [Recovered/Resolved]
